FAERS Safety Report 8947062 (Version 1)
Quarter: 2012Q4

REPORT INFORMATION
  Report Type: Report from Study
  Country: US (occurrence: US)
  Receive Date: 20121205
  Receipt Date: 20121205
  Transmission Date: 20130627
  Serious: Yes (Hospitalization)
  Sender: FDA-Public Use
  Company Number: US-VERTEX PHARMACEUTICALS INC.-AE-2010-0180

PATIENT
  Age: 60 Year
  Sex: Female
  Weight: 47.2 kg

DRUGS (4)
  1. VX-222 [Suspect]
     Indication: HEPATITIS C
     Dosage: 400 mg, UNK
     Route: 048
     Dates: start: 20100921, end: 20100930
  2. VX-950 (TELAPREVIR) [Suspect]
     Indication: HEPATITIS C
     Dosage: 1125 mg
     Route: 048
     Dates: start: 20100921, end: 20100930
  3. MULTIVITAMIN [Concomitant]
     Indication: MEDICAL DIET
     Dates: start: 1990
  4. IBUPROFEN [Concomitant]
     Indication: MYALGIA
     Dates: start: 1990, end: 20100929

REACTIONS (1)
  - Renal failure acute [Recovered/Resolved]
